FAERS Safety Report 5885804-0 (Version None)
Quarter: 2008Q3

REPORT INFORMATION
  Report Type: 
  Country: None (occurrence: None)
  Receive Date: 20080917
  Receipt Date: 20080905
  Transmission Date: 20090109
  Serious: Yes (Hospitalization)
  Sender: FDA-Public Use
  Company Number: US-JNJFOC-20080901583

PATIENT
  Sex: Female
  Weight: 61.78 kg

DRUGS (6)
  1. DURAGESIC-100 [Suspect]
     Indication: BACK PAIN
     Route: 062
  2. PERCOCET [Concomitant]
     Indication: BREAKTHROUGH PAIN
     Route: 048
  3. VALIUM [Concomitant]
     Indication: DEPRESSION
     Route: 048
  4. EFFEXOR [Concomitant]
     Indication: DEPRESSION
     Route: 048
  5. COMBIVENT [Concomitant]
     Indication: DRUG USE FOR UNKNOWN INDICATION
     Route: 055
  6. CHANTIX [Concomitant]
     Indication: SMOKING CESSATION THERAPY
     Route: 048

REACTIONS (14)
  - ABDOMINAL PAIN [None]
  - BLOOD CREATININE DECREASED [None]
  - BRADYCARDIA [None]
  - LABORATORY TEST ABNORMAL [None]
  - LYMPHADENOPATHY [None]
  - NAUSEA [None]
  - POSTOPERATIVE WOUND COMPLICATION [None]
  - POSTOPERATIVE WOUND INFECTION [None]
  - STAPHYLOCOCCAL INFECTION [None]
  - TRANSIENT ISCHAEMIC ATTACK [None]
  - VOMITING [None]
  - WEIGHT DECREASED [None]
  - WHITE BLOOD CELL COUNT DECREASED [None]
  - WITHDRAWAL SYNDROME [None]
